FAERS Safety Report 7961440-7 (Version None)
Quarter: 2011Q4

REPORT INFORMATION
  Report Type: 
  Country: None (occurrence: None)
  Receive Date: 20111202
  Receipt Date: 20111117
  Transmission Date: 20120403
  Serious: Yes (Hospitalization)
  Sender: FDA-Public Use
  Company Number: 2011-ES-0011

PATIENT
  Age: 42 Year
  Sex: Female

DRUGS (2)
  1. NITROGLYCERIN [Suspect]
     Indication: ANAL FISSURE
     Dosage: RECTAL
     Route: 054
     Dates: start: 20110914, end: 20110914
  2. BOLTIN (TIBOLONE) [Concomitant]

REACTIONS (2)
  - SYNCOPE [None]
  - HEADACHE [None]
